FAERS Safety Report 5809925-3 (Version None)
Quarter: 2008Q3

REPORT INFORMATION
  Report Type: 
  Country: None (occurrence: None)
  Receive Date: 20080714
  Receipt Date: 20080714
  Transmission Date: 20090109
  Serious: Yes (Other)
  Sender: FDA-Public Use
  Company Number: None

PATIENT
  Age: 37 Year
  Sex: Female
  Weight: 45.3597 kg

DRUGS (2)
  1. CHANTIX [Suspect]
     Indication: SMOKING CESSATION THERAPY
     Dosage: 0.5 MG  DAILY/ 1 WEEK  PO
     Route: 048
     Dates: start: 20080612, end: 20080709
  2. CHANTIX [Suspect]
     Dosage: 1.0 MG 2X/DAY CONTINUOUS  PO
     Route: 048

REACTIONS (5)
  - ANHEDONIA [None]
  - DRUG INEFFECTIVE [None]
  - FEELING OF DESPAIR [None]
  - IMPAIRED WORK ABILITY [None]
  - MAJOR DEPRESSION [None]
